FAERS Safety Report 8473858-7 (Version None)
Quarter: 2012Q2

REPORT INFORMATION
  Report Type: 
  Country: None (occurrence: None)
  Receive Date: 20120628
  Receipt Date: 20120203
  Transmission Date: 20120825
  Serious: Yes (Other)
  Sender: FDA-Public Use
  Company Number: US-MYLANLABS-2012S1000034

PATIENT
  Age: 44 Year
  Sex: Male

DRUGS (2)
  1. CLOZAPINE [Suspect]
     Route: 048
     Dates: start: 20110510, end: 20110510
  2. CLOZAPINE [Suspect]
     Route: 048
     Dates: start: 20111227, end: 20111229

REACTIONS (1)
  - GRANULOCYTOPENIA [None]
